FAERS Safety Report 20344625 (Version 3)
Quarter: 2022Q1

REPORT INFORMATION
  Report Type: Spontaneous
  Country: US (occurrence: US)
  Receive Date: 20220118
  Receipt Date: 20220204
  Transmission Date: 20220423
  Serious: Yes (Other)
  Sender: FDA-Public Use
  Company Number: US-CELLTRION INC.-2022US000330

PATIENT

DRUGS (1)
  1. TRUXIMA [Suspect]
     Active Substance: RITUXIMAB-ABBS
     Indication: Colon cancer
     Dosage: 800 MG
     Route: 042
     Dates: start: 20220114

REACTIONS (2)
  - Colon cancer [Unknown]
  - Off label use [Unknown]

NARRATIVE: CASE EVENT DATE: 20220114
